FAERS Safety Report 17559429 (Version 1)
Quarter: 2020Q1

REPORT INFORMATION
  Report Type: Spontaneous
  Country: US (occurrence: US)
  Receive Date: 20200319
  Receipt Date: 20200319
  Transmission Date: 20200409
  Serious: Yes (Other)
  Sender: FDA-Public Use
  Company Number: US-GLAXOSMITHKLINE-US2020046895

PATIENT
  Age: 85 Year
  Sex: Female

DRUGS (2)
  1. SEREVENT DISKUS [Suspect]
     Active Substance: SALMETEROL XINAFOATE
     Indication: CHRONIC OBSTRUCTIVE PULMONARY DISEASE
     Dosage: 1 PUFF(S), BID
     Route: 065
  2. SEREVENT DISKUS [Suspect]
     Active Substance: SALMETEROL XINAFOATE
     Dosage: 1 PUFF(S), QD
     Route: 065

REACTIONS (9)
  - Fall [Recovered/Resolved]
  - Internal fixation of fracture [Unknown]
  - Wrong technique in device usage process [Unknown]
  - Hip fracture [Unknown]
  - Dry mouth [Not Recovered/Not Resolved]
  - Dysphonia [Not Recovered/Not Resolved]
  - Gallbladder operation [Recovered/Resolved]
  - Prescribed underdose [Unknown]
  - Product storage error [Unknown]

NARRATIVE: CASE EVENT DATE: 20161211
